FAERS Safety Report 14159505 (Version 1)
Quarter: 2017Q4

REPORT INFORMATION
  Report Type: Spontaneous
  Country: US (occurrence: US)
  Receive Date: 20171106
  Receipt Date: 20171106
  Transmission Date: 20180321
  Serious: No
  Sender: FDA-Public Use
  Company Number: US-TEVA-804791ACC

PATIENT
  Sex: Male

DRUGS (1)
  1. EZETIMIBE W/SIMVASTATIN [Suspect]
     Active Substance: EZETIMIBE
     Indication: BLOOD CHOLESTEROL INCREASED
     Dosage: DOSE STRENGTH:  10/40 MG

REACTIONS (3)
  - Abdominal discomfort [Unknown]
  - Product substitution issue [Unknown]
  - Diarrhoea [Unknown]
